FAERS Safety Report 6146015-7 (Version None)
Quarter: 2009Q2

REPORT INFORMATION
  Report Type: 
  Country: None (occurrence: None)
  Receive Date: 20090406
  Receipt Date: 20090406
  Transmission Date: 20091009
  Serious: No
  Sender: FDA-Public Use
  Company Number: None

PATIENT
  Age: 85 Year
  Sex: Female
  Weight: 61.2356 kg

DRUGS (1)
  1. SIMVASTATIN [Suspect]
     Indication: BLOOD CHOLESTEROL
     Dosage: 1 TABLET EVERY EVENING
     Dates: start: 20090204, end: 20090322

REACTIONS (4)
  - DRY MOUTH [None]
  - ORAL DISCOMFORT [None]
  - PRODUCT QUALITY ISSUE [None]
  - STOMATITIS [None]
